FAERS Safety Report 4289313-4 (Version None)
Quarter: 2004Q1

REPORT INFORMATION
  Report Type: 
  Country: None (occurrence: None)
  Receive Date: 20040210
  Receipt Date: 20030626
  Transmission Date: 20041129
  Serious: Yes (Death, Hospitalization, Other)
  Sender: FDA-Public Use
  Company Number: PHBS2003JP06779

PATIENT
  Age: 86 Year
  Sex: Female
  Weight: 42 kg

DRUGS (3)
  1. GLEEVEC [Suspect]
     Indication: CHRONIC MYELOID LEUKAEMIA
     Dosage: 300 MG, QD
     Route: 048
     Dates: start: 20030110, end: 20030624
  2. GLEEVEC [Suspect]
     Dosage: 400 MG/D
     Route: 048
     Dates: end: 20030708
  3. GLIMICRON [Suspect]
     Indication: DIABETES MELLITUS
     Dosage: 40 MG/D
     Route: 048
     Dates: start: 20021213, end: 20030709

REACTIONS (15)
  - ABDOMINAL MASS [None]
  - ANURIA [None]
  - ASCITES [None]
  - BLAST CELLS PRESENT [None]
  - BLOOD CREATININE INCREASED [None]
  - BLOOD LACTATE DEHYDROGENASE INCREASED [None]
  - BLOOD UREA INCREASED [None]
  - FLUID RETENTION [None]
  - LOSS OF CONSCIOUSNESS [None]
  - MALIGNANT NEOPLASM PROGRESSION [None]
  - METABOLIC ALKALOSIS [None]
  - OEDEMA PERIPHERAL [None]
  - PYREXIA [None]
  - RENAL FAILURE [None]
  - WHITE BLOOD CELL COUNT DECREASED [None]
